FAERS Safety Report 20663809 (Version 2)
Quarter: 2022Q3

REPORT INFORMATION
  Report Type: Spontaneous
  Country: CA (occurrence: CA)
  Receive Date: 20220401
  Receipt Date: 20220712
  Transmission Date: 20221027
  Serious: Yes (Other)
  Sender: FDA-Public Use
  Company Number: CA-GLAXOSMITHKLINE-CA2022GSK058165

PATIENT

DRUGS (1)
  1. ZANTAC [Suspect]
     Active Substance: RANITIDINE HYDROCHLORIDE
     Indication: Dyspepsia
     Dosage: UNK
     Route: 065

REACTIONS (7)
  - Bladder cancer [Unknown]
  - Bladder cancer recurrent [Unknown]
  - Bladder transitional cell carcinoma [Unknown]
  - Bladder mass [Unknown]
  - Bladder neoplasm [Unknown]
  - Haematuria [Unknown]
  - Bladder papilloma [Unknown]
